FAERS Safety Report 20675081 (Version 8)
Quarter: 2022Q2

REPORT INFORMATION
  Report Type: Spontaneous
  Country: DE (occurrence: DE)
  Receive Date: 20220405
  Receipt Date: 20220526
  Transmission Date: 20220720
  Serious: Yes (Other)
  Sender: FDA-Public Use
  Company Number: DE-AstraZeneca-2022A129002

PATIENT
  Sex: Female

DRUGS (7)
  1. TRASTUZUMAB DERUXTECAN [Suspect]
     Active Substance: TRASTUZUMAB DERUXTECAN
     Indication: Product used for unknown indication
     Dosage: Q3W
     Route: 042
     Dates: start: 202106
  2. TAMOXIFEN [Suspect]
     Active Substance: TAMOXIFEN
     Indication: Product used for unknown indication
     Dosage: UNK
     Route: 048
     Dates: start: 201705
  3. EPIRUBICIN [Concomitant]
     Active Substance: EPIRUBICIN
     Dosage: Q3W
  4. CYCLOPHOSPHAMIDE [Concomitant]
     Active Substance: CYCLOPHOSPHAMIDE
     Dosage: Q3W
  5. PACLITAXEL [Concomitant]
     Active Substance: PACLITAXEL
     Dosage: WEEKLY
  6. DOCETAXEL [Concomitant]
     Active Substance: DOCETAXEL
     Dates: start: 2019
  7. LETROZOLE [Concomitant]
     Active Substance: LETROZOLE
     Dates: start: 201911

REACTIONS (8)
  - Metastases to lung [Unknown]
  - Pleural effusion [Recovering/Resolving]
  - Dyspnoea [Unknown]
  - Metastases to skin [Unknown]
  - Hepatic enzyme increased [Unknown]
  - Metastases to bone [Unknown]
  - COVID-19 [Unknown]
  - Nausea [Unknown]

NARRATIVE: CASE EVENT DATE: 20190701
